FAERS Safety Report 10784795 (Version 1)
Quarter: 2015Q1

REPORT INFORMATION
  Report Type: Spontaneous
  Country: US (occurrence: US)
  Receive Date: 20150211
  Receipt Date: 20150211
  Transmission Date: 20150721
  Serious: No
  Sender: FDA-Public Use
  Company Number: US-GLAXOSMITHKLINE-A1087506A

PATIENT

DRUGS (8)
  1. CYMBALTA [Concomitant]
     Active Substance: DULOXETINE HYDROCHLORIDE
  2. LEVOTHYROXINE [Concomitant]
     Active Substance: LEVOTHYROXINE
  3. LOVASTATIN. [Concomitant]
     Active Substance: LOVASTATIN
  4. METOPROLOL [Concomitant]
     Active Substance: METOPROLOL
  5. LAMOTRIGINE. [Suspect]
     Active Substance: LAMOTRIGINE
     Dates: start: 2008, end: 2008
  6. LAMICTAL [Suspect]
     Active Substance: LAMOTRIGINE
     Indication: DIABETIC NEUROPATHY
     Route: 048
     Dates: start: 2001
  7. DIOVAN [Concomitant]
     Active Substance: VALSARTAN
  8. GABAPENTIN CAPSULE [Suspect]
     Active Substance: GABAPENTIN
     Route: 048
     Dates: start: 201403, end: 201403

REACTIONS (5)
  - Diabetic neuropathy [Not Recovered/Not Resolved]
  - Thermal burn [Recovered/Resolved]
  - Rash [Recovered/Resolved]
  - Diarrhoea [Recovered/Resolved]
  - Back pain [Recovered/Resolved]

NARRATIVE: CASE EVENT DATE: 20070618
